FAERS Safety Report 11892359 (Version 3)
Quarter: 2016Q3

REPORT INFORMATION
  Report Type: Report from Study
  Country: US (occurrence: US)
  Receive Date: 20160106
  Receipt Date: 20160728
  Transmission Date: 20161109
  Serious: Yes (Other)
  Sender: FDA-Public Use
  Company Number: US-SA-2015SA105933

PATIENT
  Age: 58 Year
  Sex: Female

DRUGS (7)
  1. LEMTRADA [Suspect]
     Active Substance: ALEMTUZUMAB
     Indication: MULTIPLE SCLEROSIS
     Route: 041
     Dates: start: 20150706, end: 20150710
  2. XARELTO [Suspect]
     Active Substance: RIVAROXABAN
     Route: 065
  3. GILENYA [Concomitant]
     Active Substance: FINGOLIMOD HYDROCHLORIDE
     Dates: end: 20150721
  4. LEMTRADA [Suspect]
     Active Substance: ALEMTUZUMAB
     Indication: MULTIPLE SCLEROSIS
     Route: 041
     Dates: start: 20160711, end: 20160713
  5. PREDNISONE. [Suspect]
     Active Substance: PREDNISONE
     Route: 065
  6. XARELTO [Suspect]
     Active Substance: RIVAROXABAN
     Route: 065
  7. ADDERALL [Concomitant]
     Active Substance: AMPHETAMINE ASPARTATE\AMPHETAMINE SULFATE\DEXTROAMPHETAMINE SACCHARATE\DEXTROAMPHETAMINE SULFATE

REACTIONS (19)
  - Somnolence [Unknown]
  - Skin warm [Unknown]
  - Infusion site discolouration [Unknown]
  - Infusion site pain [Recovering/Resolving]
  - Cystitis [Not Recovered/Not Resolved]
  - Micturition urgency [Unknown]
  - Spinal disorder [Unknown]
  - Hyperhidrosis [Unknown]
  - Vaginal haemorrhage [Unknown]
  - Gingival bleeding [Unknown]
  - Dry skin [Not Recovered/Not Resolved]
  - Constipation [Unknown]
  - Spinal pain [Unknown]
  - Pollakiuria [Unknown]
  - Menstruation irregular [Not Recovered/Not Resolved]
  - Rash [Recovering/Resolving]
  - Confusional state [Unknown]
  - Type 2 diabetes mellitus [Not Recovered/Not Resolved]
  - Contusion [Not Recovered/Not Resolved]

NARRATIVE: CASE EVENT DATE: 2014
